FAERS Safety Report 16721811 (Version 1)
Quarter: 2019Q3

REPORT INFORMATION
  Report Type: Spontaneous
  Country: NL (occurrence: PL)
  Receive Date: 20190820
  Receipt Date: 20190820
  Transmission Date: 20191005
  Serious: Yes (Hospitalization)
  Sender: FDA-Public Use
  Company Number: PL-FRESENIUS KABI-FK201909148

PATIENT
  Age: 20 Year
  Sex: Female
  Weight: 68 kg

DRUGS (3)
  1. CLINDAMYCIN. [Suspect]
     Active Substance: CLINDAMYCIN
     Indication: INFECTION
     Route: 042
     Dates: start: 20160602, end: 20160622
  2. GABAPENTIN. [Suspect]
     Active Substance: GABAPENTIN
     Indication: NEURALGIA
     Dosage: DOSE: 900-1800 MG
     Route: 048
     Dates: start: 20160530, end: 20160627
  3. CARBAMAZEPINE. [Suspect]
     Active Substance: CARBAMAZEPINE
     Indication: NEURALGIA
     Dosage: DOSE: 200-600 MG
     Route: 048
     Dates: start: 20160615, end: 20160626

REACTIONS (6)
  - Skin lesion [Recovered/Resolved]
  - Eosinophil count increased [Recovered/Resolved]
  - Pyrexia [Recovered/Resolved]
  - Erythema [Recovered/Resolved]
  - C-reactive protein increased [Recovered/Resolved]
  - Skin oedema [Recovered/Resolved]

NARRATIVE: CASE EVENT DATE: 20160621
